FAERS Safety Report 7843404-7 (Version None)
Quarter: 2011Q4

REPORT INFORMATION
  Report Type: 
  Country: None (occurrence: None)
  Receive Date: 20111025
  Receipt Date: 20111013
  Transmission Date: 20120403
  Serious: Yes (Other)
  Sender: FDA-Public Use
  Company Number: CA-ROCHE-799715

PATIENT
  Age: 46 Year
  Sex: Female
  Weight: 92.6 kg

DRUGS (6)
  1. IRON SUPPLEMENT [Concomitant]
  2. HYDROCHLOROTHIAZIDE [Suspect]
     Indication: BLOOD PRESSURE
     Route: 065
     Dates: start: 20110805, end: 20110824
  3. VEMURAFENIB [Suspect]
     Route: 048
  4. VEMURAFENIB [Suspect]
     Indication: METASTATIC MALIGNANT MELANOMA
     Dosage: TEMPORARILY INTERRUPTED
     Route: 048
     Dates: start: 20110531, end: 20110824
  5. LANSOPRAZOLE [Concomitant]
  6. AMLODIPINE [Concomitant]
     Dates: start: 20110302, end: 20110727

REACTIONS (1)
  - BLOOD CREATININE INCREASED [None]
